FAERS Safety Report 5952051-3 (Version None)
Quarter: 2008Q4

REPORT INFORMATION
  Report Type: 
  Country: None (occurrence: None)
  Receive Date: 20081113
  Receipt Date: 20080131
  Transmission Date: 20090506
  Serious: No
  Sender: FDA-Public Use
  Company Number: A0706660A

PATIENT
  Age: 83 Year
  Sex: Female

DRUGS (8)
  1. COREG [Suspect]
     Dosage: 20MG PER DAY
     Route: 048
     Dates: start: 20080117
  2. PROTONIX [Concomitant]
  3. CARDIZEM [Concomitant]
  4. PLAVIX [Concomitant]
  5. MINIPRESS [Concomitant]
  6. HYDROCHLOROTHIAZIDE [Concomitant]
  7. DIGOXIN [Concomitant]
  8. QUINIDINE HCL [Concomitant]

REACTIONS (1)
  - LISTLESS [None]
